FAERS Safety Report 21055254 (Version 2)
Quarter: 2022Q3

REPORT INFORMATION
  Report Type: Spontaneous
  Country: US (occurrence: US)
  Receive Date: 20220708
  Receipt Date: 20220816
  Transmission Date: 20221027
  Serious: No
  Sender: FDA-Public Use
  Company Number: US-BRISTOL-MYERS SQUIBB COMPANY-2022-069716

PATIENT
  Age: 69 Year
  Sex: Female
  Weight: 92.53 kg

DRUGS (2)
  1. POMALYST [Suspect]
     Active Substance: POMALIDOMIDE
     Indication: Plasma cell myeloma
     Dosage: DAILY X 21 DAYS ON AND 7 DAYS OFF
     Route: 048
     Dates: start: 20210920
  2. POMALYST [Suspect]
     Active Substance: POMALIDOMIDE
     Dosage: ONCE DAILY FOR 21 DAYS ON, THEN 7 DAYS ?OFF
     Route: 048
     Dates: start: 20190122

REACTIONS (3)
  - Gait disturbance [Not Recovered/Not Resolved]
  - Platelet count decreased [Unknown]
  - Pain in extremity [Recovered/Resolved]
